FAERS Safety Report 24246970 (Version 1)
Quarter: 2024Q3

REPORT INFORMATION
  Report Type: Other
  Country: IN (occurrence: IN)
  Receive Date: 20240826
  Receipt Date: 20240826
  Transmission Date: 20241016
  Serious: Yes (Hospitalization, Other)
  Sender: TOLMAR
  Company Number: IN-MLMSERVICE-20240731-PI149047-00195-1

PATIENT
  Age: 30 Year
  Sex: Female

DRUGS (5)
  1. ELIGARD [Suspect]
     Active Substance: LEUPROLIDE ACETATE
     Indication: Acute myeloid leukaemia
     Dosage: UNK (7 + 3 REGIMEN)
     Dates: start: 202111
  2. ELIGARD [Suspect]
     Active Substance: LEUPROLIDE ACETATE
     Indication: Acute myeloid leukaemia
     Dosage: UNK
  3. CYTARABINE [Suspect]
     Active Substance: CYTARABINE
     Indication: Acute myeloid leukaemia
     Dosage: UNK (7 + 3 REGIMEN)
     Dates: start: 202111
  4. GEMTUZUMAB OZOGAMICIN [Suspect]
     Active Substance: GEMTUZUMAB OZOGAMICIN
     Indication: Acute myeloid leukaemia
     Dosage: UNK (7 + 3 REGIMEN)
     Dates: start: 202111
  5. DAUNORUBICIN [Suspect]
     Active Substance: DAUNORUBICIN
     Indication: Acute myeloid leukaemia
     Dosage: UNK (7 + 3 REGIMEN)
     Dates: start: 202111

REACTIONS (13)
  - Alpha haemolytic streptococcal infection [Recovered/Resolved]
  - Febrile neutropenia [Recovered/Resolved]
  - Intestinal stenosis [Recovered/Resolved]
  - Peritonitis [Recovered/Resolved]
  - Gastrointestinal necrosis [Recovered/Resolved]
  - Candida infection [Recovered/Resolved]
  - Neutropenic colitis [Recovered/Resolved]
  - Intestinal haematoma [Recovered/Resolved]
  - Thrombocytopenia [Recovered/Resolved]
  - Enterocutaneous fistula [Recovered/Resolved]
  - Enterobacter infection [Recovered/Resolved]
  - Intestinal ischaemia [Recovered/Resolved]
  - Off label use [Unknown]

NARRATIVE: CASE EVENT DATE: 20210101
